FAERS Safety Report 9636194 (Version 1)
Quarter: 2013Q4

REPORT INFORMATION
  Report Type: Spontaneous
  Country: FR (occurrence: None)
  Receive Date: 20131017
  Receipt Date: 20131017
  Transmission Date: 20140711
  Serious: Yes (Death, Hospitalization)
  Sender: FDA-Public Use
  Company Number: NSR_01297_2013

PATIENT
  Age: 20 Year
  Sex: 0

DRUGS (3)
  1. TRAMADOL [Suspect]
     Indication: PRODUCT USED FOR UNKNOWN INDICATION
  2. TRIMEBUTINE [Suspect]
     Indication: PRODUCT USED FOR UNKNOWN INDICATION
  3. TIAPROFENIC ACID [Suspect]
     Indication: PRODUCT USED FOR UNKNOWN INDICATION

REACTIONS (13)
  - Completed suicide [None]
  - Incorrect dose administered [None]
  - Dizziness [None]
  - Somnolence [None]
  - Altered state of consciousness [None]
  - Coma [None]
  - Convulsion [None]
  - Confusional state [None]
  - Hallucination [None]
  - Nausea [None]
  - Vomiting [None]
  - Constipation [None]
  - Drug interaction [None]
